FAERS Safety Report 18673164 (Version 1)
Quarter: 2020Q4

REPORT INFORMATION
  Report Type: Spontaneous
  Country: CN (occurrence: CN)
  Receive Date: 20201229
  Receipt Date: 20201229
  Transmission Date: 20210114
  Serious: Yes (Other)
  Sender: FDA-Public Use
  Company Number: CN-ROCHE-2740712

PATIENT
  Age: 41 Year
  Sex: Female

DRUGS (3)
  1. ETOPOSIDE. [Concomitant]
     Active Substance: ETOPOSIDE
     Indication: SMALL CELL LUNG CANCER
  2. TECENTRIQ [Suspect]
     Active Substance: ATEZOLIZUMAB
     Indication: SMALL CELL LUNG CANCER
     Route: 042
  3. CARBOPLATIN. [Concomitant]
     Active Substance: CARBOPLATIN
     Indication: SMALL CELL LUNG CANCER

REACTIONS (5)
  - Seizure [Unknown]
  - Ketoacidosis [Unknown]
  - Somnambulism [Unknown]
  - Enuresis [Unknown]
  - Rash [Recovered/Resolved]

NARRATIVE: CASE EVENT DATE: 202012
